FAERS Safety Report 5319882-4 (Version None)
Quarter: 2007Q2

REPORT INFORMATION
  Report Type: 
  Country: None (occurrence: None)
  Receive Date: 20070503
  Receipt Date: 20070418
  Transmission Date: 20071010
  Serious: Yes (Death)
  Sender: FDA-Public Use
  Company Number: 2007US000881

PATIENT
  Age: 19 Year
  Sex: Female

DRUGS (5)
  1. PROGRAF [Suspect]
     Indication: LUNG TRANSPLANT REJECTION
  2. PREDNISONE TAB [Suspect]
     Indication: LUNG TRANSPLANT REJECTION
  3. VORICONAZOLE (VORICONAZOLE) [Concomitant]
  4. TRIMETOPRIM + SULFAMETOXALOM (SULFAMETHOXAZOLE, TRIMETHOPRIM) [Concomitant]
     Indication: LUNG TRANSPLANT REJECTION
  5. VALGANCICLOVIR HCL [Concomitant]

REACTIONS (25)
  - ARTHRITIS BACTERIAL [None]
  - BACTERIAL INFECTION [None]
  - BRONCHOALVEOLAR LAVAGE ABNORMAL [None]
  - CELLULITIS [None]
  - COMPLICATIONS OF TRANSPLANTED LUNG [None]
  - CULTURE POSITIVE [None]
  - CULTURE URINE POSITIVE [None]
  - ENDOPHTHALMITIS [None]
  - FUNGAEMIA [None]
  - FUNGAL INFECTION [None]
  - FUNGAL SKIN INFECTION [None]
  - LUNG INFECTION PSEUDOMONAL [None]
  - LUNG TRANSPLANT REJECTION [None]
  - MEDIASTINITIS [None]
  - OBLITERATIVE BRONCHIOLITIS [None]
  - OSTEOMYELITIS [None]
  - PAIN OF SKIN [None]
  - RESPIRATORY DISORDER [None]
  - RESPIRATORY TRACT INFECTION BACTERIAL [None]
  - RESPIRATORY TRACT INFECTION FUNGAL [None]
  - SCEDOSPORIUM INFECTION [None]
  - SINUSITIS [None]
  - SKIN NODULE [None]
  - URINARY TRACT DISORDER [None]
  - VISION BLURRED [None]
